FAERS Safety Report 11838076 (Version 2)
Quarter: 2016Q1

REPORT INFORMATION
  Report Type: Report from Study
  Country: CA (occurrence: CA)
  Receive Date: 20151215
  Receipt Date: 20160219
  Transmission Date: 20160525
  Serious: Yes (Other)
  Sender: FDA-Public Use
  Company Number: CA-JNJFOC-20151208911

PATIENT
  Age: 66 Year
  Sex: Female
  Weight: 98 kg

DRUGS (2)
  1. STELARA [Suspect]
     Active Substance: USTEKINUMAB
     Indication: PSORIASIS
     Dosage: APPROXIMATELY 14 DOSES ADMINISTERED
     Route: 058
     Dates: start: 201205
  2. STELARA [Suspect]
     Active Substance: USTEKINUMAB
     Indication: PSORIATIC ARTHROPATHY
     Dosage: APPROXIMATELY 14 DOSES ADMINISTERED
     Route: 058
     Dates: start: 201205

REACTIONS (1)
  - Kidney infection [Recovered/Resolved]

NARRATIVE: CASE EVENT DATE: 20151201
